FAERS Safety Report 26094676 (Version 4)
Quarter: 2025Q4

REPORT INFORMATION
  Report Type: Spontaneous
  Country: EU (occurrence: EU)
  Receive Date: 20251126
  Receipt Date: 20251231
  Transmission Date: 20260117
  Serious: Yes (Other)
  Sender: JOHNSON AND JOHNSON
  Company Number: EU-JNJFOC-20251146108

PATIENT
  Age: 61 Year
  Sex: Female

DRUGS (2)
  1. RYBREVANT [Suspect]
     Active Substance: AMIVANTAMAB-VMJW
     Indication: Non-small cell lung cancer metastatic
     Dosage: LAST ADMINISTERED ON 23-SEP-2025
  2. RYBREVANT [Suspect]
     Active Substance: AMIVANTAMAB-VMJW
     Dosage: INFUSION 7 LAST ADMINISTERED ON 16-DEC-2025

REACTIONS (4)
  - Haematotoxicity [Unknown]
  - Gastrointestinal toxicity [Unknown]
  - Adverse drug reaction [Unknown]
  - Off label use [Unknown]
